FAERS Safety Report 18400303 (Version 1)
Quarter: 2020Q4

REPORT INFORMATION
  Report Type: Spontaneous
  Country: US (occurrence: US)
  Receive Date: 20201019
  Receipt Date: 20201019
  Transmission Date: 20210114
  Serious: No
  Sender: FDA-Public Use
  Company Number: US-ALLERGAN-2035256US

PATIENT
  Age: 66 Year
  Sex: Male

DRUGS (4)
  1. LORAZEPAM. [Concomitant]
     Active Substance: LORAZEPAM
     Indication: SLEEP DISORDER
     Dosage: 50 MG, 1-2 TABS, QHS
  2. LAMOTRIGINE. [Concomitant]
     Active Substance: LAMOTRIGINE
     Dosage: 100 MG, QD
  3. WELLBUTRIN [Concomitant]
     Active Substance: BUPROPION HYDROCHLORIDE
     Dosage: 150 MG, QD
  4. VRAYLAR [Suspect]
     Active Substance: CARIPRAZINE
     Indication: DEPRESSIVE SYMPTOM

REACTIONS (5)
  - Drug ineffective [Unknown]
  - Balance disorder [Unknown]
  - Impaired driving ability [Unknown]
  - Fall [Unknown]
  - Loss of personal independence in daily activities [Unknown]
